FAERS Safety Report 21605568 (Version 2)
Quarter: 2023Q1

REPORT INFORMATION
  Report Type: Report from Study
  Country: FR (occurrence: FR)
  Receive Date: 20221116
  Receipt Date: 20230102
  Transmission Date: 20230418
  Serious: Yes (Hospitalization, Other)
  Sender: FDA-Public Use
  Company Number: FR-SA-SAC20221107001187

PATIENT
  Age: 72 Year
  Sex: Male
  Weight: 83 kg

DRUGS (8)
  1. CARFILZOMIB [Suspect]
     Active Substance: CARFILZOMIB
     Indication: Plasma cell myeloma
     Dosage: 38 MILLIGRAM, QD
     Route: 065
     Dates: start: 20220602, end: 20220602
  2. CARFILZOMIB [Suspect]
     Active Substance: CARFILZOMIB
     Dosage: 104 MILLIGRAM, QD
     Route: 065
     Dates: start: 20221020, end: 20221020
  3. CARFILZOMIB [Suspect]
     Active Substance: CARFILZOMIB
     Dosage: 104 MILLIGRAM
     Route: 065
     Dates: start: 20221124, end: 20221124
  4. POMALIDOMIDE [Suspect]
     Active Substance: POMALIDOMIDE
     Indication: Plasma cell myeloma
     Dosage: 3 MILLIGRAM, QD
     Route: 065
     Dates: start: 20220602, end: 20220602
  5. DEXAMETHASONE [Suspect]
     Active Substance: DEXAMETHASONE
     Indication: Plasma cell myeloma
     Dosage: 40 MILLIGRAM, QD
     Route: 048
     Dates: start: 20220602, end: 20220602
  6. DEXAMETHASONE [Suspect]
     Active Substance: DEXAMETHASONE
     Dosage: 40 MILLIGRAM, QD
     Route: 065
     Dates: start: 20221020, end: 20221020
  7. ISATUXIMAB [Suspect]
     Active Substance: ISATUXIMAB
     Indication: Plasma cell myeloma
     Dosage: 860 MILLIGRAM, QD
     Route: 065
     Dates: start: 20221020, end: 20221020
  8. ISATUXIMAB [Suspect]
     Active Substance: ISATUXIMAB
     Dosage: 800 MILLIGRAM, QD
     Route: 065
     Dates: start: 20220602, end: 20220602

REACTIONS (2)
  - Bronchopneumopathy [Unknown]
  - Malignant melanoma [Not Recovered/Not Resolved]

NARRATIVE: CASE EVENT DATE: 20221025
